FAERS Safety Report 8921847 (Version 1)
Quarter: 2012Q4

REPORT INFORMATION
  Report Type: 
  Country: GB (occurrence: GB)
  Receive Date: 20121121
  Receipt Date: 20121121
  Transmission Date: 20130627
  Serious: Yes (Hospitalization)
  Sender: FDA-Public Use
  Company Number: GB-WATSON-2012-20118

PATIENT
  Age: 59 Year
  Sex: Female

DRUGS (3)
  1. CARVEDILOL [Suspect]
     Indication: CARDIAC FAILURE CONGESTIVE
     Dosage: 3.125 mg, daily
     Route: 065
  2. CARVEDILOL [Suspect]
     Dosage: 3.125 mg, daily
     Route: 065
  3. RAMIPRIL [Concomitant]
     Indication: CARDIAC FAILURE CONGESTIVE
     Dosage: UNK, unknown
     Route: 065

REACTIONS (1)
  - Cardiogenic shock [Recovered/Resolved]
